FAERS Safety Report 16951921 (Version 1)
Quarter: 2019Q4

REPORT INFORMATION
  Report Type: Spontaneous
  Country: AU (occurrence: AU)
  Receive Date: 20191023
  Receipt Date: 20191023
  Transmission Date: 20200122
  Serious: No
  Sender: FDA-Public Use
  Company Number: AU-BEH-2019108387

PATIENT
  Age: 56 Year
  Sex: Female

DRUGS (1)
  1. PRIVIGEN [Suspect]
     Active Substance: HUMAN IMMUNOGLOBULIN G
     Indication: LUNG TRANSPLANT
     Dosage: 35 GRAM
     Route: 065
     Dates: start: 20191020

REACTIONS (3)
  - Product use in unapproved indication [Unknown]
  - Hypotension [Unknown]
  - No adverse event [Unknown]

NARRATIVE: CASE EVENT DATE: 20191020
